FAERS Safety Report 9258281 (Version 2)
Quarter: 2013Q2

REPORT INFORMATION
  Report Type: Spontaneous
  Country: US (occurrence: US)
  Receive Date: 20130426
  Receipt Date: 20130503
  Transmission Date: 20140414
  Serious: Yes (Life-Threatening, Other)
  Sender: FDA-Public Use
  Company Number: US-PFIZER INC-2013130977

PATIENT
  Age: 89 Year
  Sex: Male
  Weight: 79.4 kg

DRUGS (2)
  1. ZOLOFT [Suspect]
     Indication: DEPRESSION
     Dosage: UNK
  2. METOPROLOL [Concomitant]
     Indication: HYPERTENSION
     Dosage: UNK

REACTIONS (32)
  - Fall [Unknown]
  - Skull fracture [Unknown]
  - Aphagia [Not Recovered/Not Resolved]
  - Mouth injury [Unknown]
  - Drug ineffective [Unknown]
  - Road traffic accident [Unknown]
  - Blood pressure abnormal [Unknown]
  - Nerve injury [Not Recovered/Not Resolved]
  - Tremor [Not Recovered/Not Resolved]
  - Pain [Not Recovered/Not Resolved]
  - Insomnia [Unknown]
  - Gait disturbance [Not Recovered/Not Resolved]
  - Impaired driving ability [Unknown]
  - Weight decreased [Unknown]
  - Drug intolerance [Unknown]
  - Stress [Unknown]
  - Speech disorder [Unknown]
  - Asthenia [Unknown]
  - Disturbance in attention [Unknown]
  - Crying [Unknown]
  - Conversion disorder [Unknown]
  - General physical health deterioration [Unknown]
  - Mental disorder [Unknown]
  - Emotional disorder [Unknown]
  - Dental caries [Not Recovered/Not Resolved]
  - Tooth loss [Unknown]
  - Gingival bleeding [Unknown]
  - Tooth fracture [Unknown]
  - Tooth disorder [Unknown]
  - Toothache [Unknown]
  - Aptyalism [Unknown]
  - Tooth impacted [Unknown]
